FAERS Safety Report 4978598-4 (Version None)
Quarter: 2006Q2

REPORT INFORMATION
  Report Type: 
  Country: None (occurrence: None)
  Receive Date: 20060420
  Receipt Date: 20051122
  Transmission Date: 20061013
  Serious: Yes (Hospitalization, Disabling)
  Sender: FDA-Public Use
  Company Number: US-MERCK-0511USA04023

PATIENT
  Age: 47 Year
  Sex: Female
  Weight: 82 kg

DRUGS (9)
  1. VIOXX [Suspect]
     Indication: ARTHRALGIA
     Route: 048
     Dates: start: 20010101, end: 20040930
  2. ASPIRIN [Concomitant]
     Route: 065
  3. GLUCOPHAGE [Concomitant]
     Indication: DIABETES MELLITUS
     Route: 065
  4. PRAVACHOL [Concomitant]
     Indication: HYPERCHOLESTEROLAEMIA
     Route: 065
     Dates: start: 20020101
  5. ALBUTEROL [Concomitant]
     Indication: ASTHMA
     Route: 065
  6. IBUPROFEN [Concomitant]
     Route: 065
  7. INSULIN [Concomitant]
     Indication: DIABETES MELLITUS
     Route: 065
  8. PRINIVIL [Concomitant]
     Indication: HYPERTENSION
     Route: 065
     Dates: start: 20000101
  9. ZOLOFT [Concomitant]
     Indication: DEPRESSION
     Route: 065
     Dates: start: 20040101, end: 20050901

REACTIONS (4)
  - ASTHMA [None]
  - CEREBROVASCULAR ACCIDENT [None]
  - CHEST PAIN [None]
  - DIABETES MELLITUS [None]
